FAERS Safety Report 15385631 (Version 1)
Quarter: 2018Q3

REPORT INFORMATION
  Report Type: Spontaneous
  Country: US (occurrence: US)
  Receive Date: 20180914
  Receipt Date: 20180914
  Transmission Date: 20181010
  Serious: No
  Sender: FDA-Public Use
  Company Number: US-TEVA-2018-US-900741

PATIENT
  Age: 31 Year
  Sex: Female
  Weight: 95 kg

DRUGS (16)
  1. NICARDIPINE [Suspect]
     Active Substance: NICARDIPINE
     Indication: BLOOD PRESSURE MEASUREMENT
     Route: 013
  2. ROCURONIUM [Suspect]
     Active Substance: ROCURONIUM BROMIDE
     Indication: INDUCTION OF ANAESTHESIA
     Route: 065
  3. SEVOFLURANE. [Suspect]
     Active Substance: SEVOFLURANE
     Indication: MAINTENANCE OF ANAESTHESIA
     Route: 065
  4. LABETALOL [Suspect]
     Active Substance: LABETALOL\LABETALOL HYDROCHLORIDE
     Indication: BLOOD PRESSURE MEASUREMENT
     Route: 065
  5. PROPOFOL. [Suspect]
     Active Substance: PROPOFOL
     Route: 050
  6. ESMOLOL [Suspect]
     Active Substance: ESMOLOL HYDROCHLORIDE
     Indication: BLOOD PRESSURE MEASUREMENT
     Route: 013
  7. MILRINONE [Suspect]
     Active Substance: MILRINONE
     Indication: CARDIAC CONTRACTILITY MODULATION THERAPY
     Route: 050
  8. FENTANYL. [Suspect]
     Active Substance: FENTANYL
     Indication: INDUCTION AND MAINTENANCE OF ANAESTHESIA
     Route: 065
  9. DOBUTAMINE [Suspect]
     Active Substance: DOBUTAMINE\DOBUTAMINE HYDROCHLORIDE
     Indication: CARDIAC CONTRACTILITY MODULATION THERAPY
     Route: 050
  10. PROPOFOL. [Suspect]
     Active Substance: PROPOFOL
     Indication: INDUCTION OF ANAESTHESIA
     Route: 065
  11. MIDAZOLAM [Suspect]
     Active Substance: MIDAZOLAM HYDROCHLORIDE
     Indication: MAINTENANCE OF ANAESTHESIA
     Dosage: ADMINISTERED OVER 11 HOURS
     Route: 065
  12. HEPARIN [Suspect]
     Active Substance: HEPARIN SODIUM
     Indication: CORONARY ARTERY THROMBOSIS
     Route: 065
  13. HUMAN RHO(D) IMMUNE GLOBULIN [Suspect]
     Active Substance: HUMAN RHO(D) IMMUNE GLOBULIN
     Route: 065
  14. NOREPINEPHRINE. [Suspect]
     Active Substance: NOREPINEPHRINE
     Indication: BLOOD PRESSURE MEASUREMENT
     Route: 050
  15. FENTANYL. [Suspect]
     Active Substance: FENTANYL
     Indication: INDUCTION AND MAINTENANCE OF ANAESTHESIA
     Dosage: ADMINISTERED OVER 11 HOURS
     Route: 065
  16. LABETALOL [Suspect]
     Active Substance: LABETALOL\LABETALOL HYDROCHLORIDE
     Dosage: TITRATED TO KEEP HER SYSTOLIC BP BETWEEN 100 AND 120MMHG
     Route: 065

REACTIONS (3)
  - Normal newborn [Recovered/Resolved]
  - Maternal exposure during pregnancy [Recovered/Resolved]
  - Maternal exposure during delivery [Recovered/Resolved]
